FAERS Safety Report 10453191 (Version 2)
Quarter: 2014Q3

REPORT INFORMATION
  Report Type: Report from Study
  Country: US (occurrence: US)
  Receive Date: 20140915
  Receipt Date: 20140915
  Transmission Date: 20150326
  Serious: Yes (Other)
  Sender: FDA-Public Use
  Company Number: US-SA-2013SA095687

PATIENT
  Age: 68 Year
  Sex: Female
  Weight: 45.3 kg

DRUGS (15)
  1. CILOSTAZOL. [Concomitant]
     Active Substance: CILOSTAZOL
  2. NEURONTIN [Concomitant]
     Active Substance: GABAPENTIN
  3. ALENDRONATE [Concomitant]
     Active Substance: ALENDRONATE SODIUM
     Indication: BONE LOSS
     Dates: start: 2011
  4. ASPIRIN. [Concomitant]
     Active Substance: ASPIRIN
     Dates: start: 2011
  5. DYMISTA [Concomitant]
     Active Substance: AZELASTINE HYDROCHLORIDE\FLUTICASONE PROPIONATE
  6. AUBAGIO [Suspect]
     Active Substance: TERIFLUNOMIDE
     Indication: MULTIPLE SCLEROSIS
     Route: 048
     Dates: start: 20130914, end: 20140115
  7. BACLOFEN. [Concomitant]
     Active Substance: BACLOFEN
  8. PREDNISONE. [Concomitant]
     Active Substance: PREDNISONE
  9. VITAMIN D [Concomitant]
     Active Substance: CHOLECALCIFEROL
     Indication: BONE LOSS
     Dates: start: 20121101
  10. AUBAGIO [Suspect]
     Active Substance: TERIFLUNOMIDE
     Indication: MULTIPLE SCLEROSIS
     Route: 048
     Dates: start: 20130914, end: 20140115
  11. PROTONIX [Concomitant]
     Active Substance: PANTOPRAZOLE SODIUM
     Dosage: 20 MG
  12. DYMISTA [Concomitant]
     Active Substance: AZELASTINE HYDROCHLORIDE\FLUTICASONE PROPIONATE
  13. MELOXICAM. [Concomitant]
     Active Substance: MELOXICAM
  14. GABAPENTIN. [Concomitant]
     Active Substance: GABAPENTIN
     Indication: HEADACHE
     Dates: start: 20121101
  15. AMITRIPTYLIN [Concomitant]
     Active Substance: AMITRIPTYLINE
     Dosage: 100 MG

REACTIONS (25)
  - Back pain [Not Recovered/Not Resolved]
  - Cough [Not Recovered/Not Resolved]
  - Hypersensitivity [Unknown]
  - Tremor [Unknown]
  - Tachycardia [Unknown]
  - Weight decreased [Not Recovered/Not Resolved]
  - Nasal congestion [Unknown]
  - Ear discomfort [Not Recovered/Not Resolved]
  - Rhinorrhoea [Unknown]
  - Candida infection [Unknown]
  - Rhinorrhoea [Not Recovered/Not Resolved]
  - Chronic obstructive pulmonary disease [Unknown]
  - Upper respiratory tract infection [Not Recovered/Not Resolved]
  - Peripheral swelling [Unknown]
  - Head discomfort [Not Recovered/Not Resolved]
  - Derealisation [Unknown]
  - Bronchitis [Unknown]
  - Sinusitis [Unknown]
  - Influenza [Unknown]
  - Road traffic accident [Unknown]
  - Laceration [Unknown]
  - Musculoskeletal discomfort [Not Recovered/Not Resolved]
  - Skin discolouration [Unknown]
  - Limb discomfort [Not Recovered/Not Resolved]
  - Respiratory tract infection [Not Recovered/Not Resolved]

NARRATIVE: CASE EVENT DATE: 2013
